FAERS Safety Report 5885375-9 (Version None)
Quarter: 2008Q3

REPORT INFORMATION
  Report Type: 
  Country: None (occurrence: None)
  Receive Date: 20080912
  Receipt Date: 20080822
  Transmission Date: 20090109
  Serious: Yes (Hospitalization)
  Sender: FDA-Public Use
  Company Number: 1-16556149

PATIENT
  Age: 68 Year
  Sex: Female
  Weight: 113.3993 kg

DRUGS (4)
  1. WARFARIN SODIUM [Suspect]
     Indication: ATRIAL FIBRILLATION
     Dosage: 5 MG, DAILY, ORAL
     Route: 048
     Dates: start: 20070201
  2. TOPROL-XL [Concomitant]
  3. LISINOPRIL [Suspect]
  4. SOTALOL [Concomitant]

REACTIONS (6)
  - ABDOMINAL PAIN [None]
  - CHOLELITHIASIS [None]
  - HEPATIC CIRRHOSIS [None]
  - INSOMNIA [None]
  - PAIN IN EXTREMITY [None]
  - SPINAL OSTEOARTHRITIS [None]
